FAERS Safety Report 25026065 (Version 2)
Quarter: 2025Q2

REPORT INFORMATION
  Report Type: Spontaneous
  Country: FR (occurrence: FR)
  Receive Date: 20250301
  Receipt Date: 20250404
  Transmission Date: 20250716
  Serious: Yes (Death, Other)
  Sender: ABBVIE
  Company Number: FR-ABBVIE-6156430

PATIENT
  Age: 51 Year
  Sex: Female
  Weight: 67 kg

DRUGS (1)
  1. RINVOQ [Suspect]
     Active Substance: UPADACITINIB
     Indication: Rheumatoid arthritis
     Dosage: DOSE 15, FREQUENCY:1
     Route: 048
     Dates: start: 2021, end: 20250223

REACTIONS (4)
  - Multiple organ dysfunction syndrome [Fatal]
  - Anal cancer [Fatal]
  - Hepatic cancer metastatic [Unknown]
  - Rectal lesion [Unknown]

NARRATIVE: CASE EVENT DATE: 20250130
